FAERS Safety Report 10298537 (Version 1)
Quarter: 2014Q3

REPORT INFORMATION
  Report Type: Spontaneous
  Country: US (occurrence: US)
  Receive Date: 20140711
  Receipt Date: 20140711
  Transmission Date: 20150326
  Serious: No
  Sender: FDA-Public Use
  Company Number: US-009507513-1407USA003656

PATIENT
  Sex: Female

DRUGS (1)
  1. COPPERTONE SPORT CONTINUOUS SPRAY SPF 70 [Suspect]
     Active Substance: OCTINOXATE\OCTOCRYLENE
     Indication: PRODUCT USED FOR UNKNOWN INDICATION
     Dosage: UNK, UNKNOWN
     Route: 061

REACTIONS (1)
  - Expired product administered [Unknown]
